FAERS Safety Report 21948760 (Version 1)
Quarter: 2023Q1

REPORT INFORMATION
  Report Type: Spontaneous
  Country: TR (occurrence: TR)
  Receive Date: 20230203
  Receipt Date: 20230203
  Transmission Date: 20230417
  Serious: Yes (Death, Hospitalization)
  Sender: FDA-Public Use
  Company Number: TR-STERISCIENCE B.V.-2023-ST-000407

PATIENT
  Age: 34 Year
  Sex: Female

DRUGS (7)
  1. GANCICLOVIR SODIUM [Suspect]
     Active Substance: GANCICLOVIR SODIUM
     Indication: Pneumonia cytomegaloviral
     Dosage: 5 MILLIGRAM/KILOGRAM, BID
     Route: 042
     Dates: start: 2018
  2. PIPERACILLIN SODIUM\TAZOBACTAM SODIUM [Suspect]
     Active Substance: PIPERACILLIN SODIUM\TAZOBACTAM SODIUM
     Indication: Pneumonia cytomegaloviral
     Dosage: DOSE 1, 4.5 GRAM, QD
     Dates: start: 2018
  3. PIPERACILLIN SODIUM\TAZOBACTAM SODIUM [Suspect]
     Active Substance: PIPERACILLIN SODIUM\TAZOBACTAM SODIUM
     Dosage: DOSE 2, 4.5 GRAM, QD
     Dates: start: 2018
  4. PIPERACILLIN SODIUM\TAZOBACTAM SODIUM [Suspect]
     Active Substance: PIPERACILLIN SODIUM\TAZOBACTAM SODIUM
     Dosage: DOSE 3, 4.5 GRAM, QD
     Dates: start: 2018
  5. PIPERACILLIN SODIUM\TAZOBACTAM SODIUM [Suspect]
     Active Substance: PIPERACILLIN SODIUM\TAZOBACTAM SODIUM
     Dosage: DOSE 4, 4.5 GRAM, QD
     Dates: start: 2018
  6. VALGANCICLOVIR [Suspect]
     Active Substance: VALGANCICLOVIR
     Indication: Antiviral prophylaxis
     Dosage: 900 MILLIGRAM, QD
     Route: 048
     Dates: start: 2018
  7. CIPROFLOXACIN [Suspect]
     Active Substance: CIPROFLOXACIN
     Indication: Pneumonia cytomegaloviral
     Dosage: 400 MILLIGRAM, BID
     Route: 042
     Dates: start: 2018

REACTIONS (2)
  - Drug ineffective [Fatal]
  - Off label use [Unknown]

NARRATIVE: CASE EVENT DATE: 20180101
